FAERS Safety Report 4385585-6 (Version None)
Quarter: 2004Q2

REPORT INFORMATION
  Report Type: 
  Country: None (occurrence: None)
  Receive Date: 20040628
  Receipt Date: 20040623
  Transmission Date: 20050107
  Serious: Yes (Death)
  Sender: FDA-Public Use
  Company Number: PHBS2004HU08275

PATIENT
  Age: 27 Year
  Sex: Male
  Weight: 78 kg

DRUGS (1)
  1. TRILEPTAL [Suspect]
     Indication: EPILEPSY
     Dosage: 600-750 MG/D
     Route: 048
     Dates: start: 20020707, end: 20040110

REACTIONS (4)
  - BRAIN OEDEMA [None]
  - DILATATION ATRIAL [None]
  - DILATATION VENTRICULAR [None]
  - SUDDEN DEATH [None]
